FAERS Safety Report 18928529 (Version 2)
Quarter: 2021Q3

REPORT INFORMATION
  Report Type: Spontaneous
  Country: US (occurrence: US)
  Receive Date: 20210223
  Receipt Date: 20210921
  Transmission Date: 20211014
  Serious: No
  Sender: FDA-Public Use
  Company Number: US-MYLANLABS-2021M1009305

PATIENT
  Sex: Female

DRUGS (2)
  1. LIDOCAINE PATCH [Suspect]
     Active Substance: LIDOCAINE
     Indication: RIB FRACTURE
     Dosage: UNK
     Route: 003
  2. LIDOCAINE PATCH [Suspect]
     Active Substance: LIDOCAINE
     Indication: PNEUMOTHORAX

REACTIONS (2)
  - Product adhesion issue [Unknown]
  - Off label use [Unknown]
